FAERS Safety Report 8361401-2 (Version None)
Quarter: 2012Q2

REPORT INFORMATION
  Report Type: 
  Country: None (occurrence: None)
  Receive Date: 20120515
  Receipt Date: 20110816
  Transmission Date: 20120825
  Serious: Yes (Other)
  Sender: FDA-Public Use
  Company Number: US-ALEXION-A201101163

PATIENT
  Sex: Female

DRUGS (14)
  1. TACROLIMUS [Concomitant]
     Dosage: 1MG BID
     Route: 048
  2. ACYCLOVIR [Concomitant]
     Dosage: 400 MG BID
     Route: 048
  3. PREDNISONE TAB [Concomitant]
     Dosage: 10 MG, QD
     Route: 048
  4. METOPROLOL TARTRATE [Concomitant]
     Dosage: 50 MG BID
     Route: 048
  5. PREDNISONE TAB [Concomitant]
     Dosage: 5 MG QD
     Route: 048
  6. SIROLIMUS [Concomitant]
     Dosage: 3 MG QD
     Route: 048
  7. MICAFUNGIN [Concomitant]
     Dosage: UNK QD
     Route: 042
  8. SOLIRIS [Suspect]
     Indication: PAROXYSMAL NOCTURNAL HAEMOGLOBINURIA
     Dosage: 600 MG QW
     Route: 042
     Dates: start: 20110623
  9. PROTONIX [Concomitant]
     Dosage: 40 MG, QD
     Route: 048
  10. GEMFIBROZIL [Concomitant]
     Dosage: 600 MG BID
     Route: 048
  11. VIDAZA [Concomitant]
     Indication: MYELODYSPLASTIC SYNDROME
  12. SOLIRIS [Suspect]
     Dosage: 900 MG Q2W
     Route: 042
     Dates: start: 20110721
  13. ACTIGALL [Concomitant]
     Dosage: 300 MG BID
     Route: 048
  14. BACTRIM [Concomitant]
     Dosage: UNK 2 DAYS BID
     Route: 048

REACTIONS (2)
  - CONDITION AGGRAVATED [None]
  - MYELODYSPLASTIC SYNDROME [None]
